FAERS Safety Report 16443777 (Version 2)
Quarter: 2019Q2

REPORT INFORMATION
  Report Type: Spontaneous
  Country: US (occurrence: US)
  Receive Date: 20190618
  Receipt Date: 20190629
  Transmission Date: 20190711
  Serious: Yes (Life-Threatening, Hospitalization, Other)
  Sender: FDA-Public Use
  Company Number: US-AUROBINDO-AUR-APL-2019-034384

PATIENT

DRUGS (1)
  1. SILDENAFIL. [Suspect]
     Active Substance: SILDENAFIL
     Indication: SEXUAL DYSFUNCTION
     Dosage: UNK
     Route: 065

REACTIONS (6)
  - Hyperkalaemia [Unknown]
  - Mental status changes [Unknown]
  - Unresponsive to stimuli [Unknown]
  - Blood pressure decreased [Recovered/Resolved]
  - Heart rate increased [Unknown]
  - Atrial fibrillation [Unknown]
